FAERS Safety Report 10210239 (Version 1)
Quarter: 2014Q2

REPORT INFORMATION
  Report Type: Spontaneous
  Country: US (occurrence: None)
  Receive Date: 20140529
  Receipt Date: 20140529
  Transmission Date: 20141212
  Serious: No
  Sender: FDA-Public Use
  Company Number: None

PATIENT
  Sex: Female

DRUGS (4)
  1. ATORVASTIN [Suspect]
     Indication: BLOOD CHOLESTEROL INCREASED
     Dosage: 3-5 YEARS, 10MG, QD, PO
     Route: 048
  2. LISINOPRIL [Concomitant]
  3. COREG [Concomitant]
  4. COQ-10 [Concomitant]

REACTIONS (6)
  - Flushing [None]
  - Pruritus [None]
  - Diarrhoea [None]
  - Myalgia [None]
  - Therapy cessation [None]
  - Vitamin D decreased [None]
